FAERS Safety Report 5725320-X (Version None)
Quarter: 2008Q2

REPORT INFORMATION
  Report Type: 
  Country: None (occurrence: None)
  Receive Date: 20080501
  Receipt Date: 20080416
  Transmission Date: 20081010
  Serious: Yes (Hospitalization, Other)
  Sender: FDA-Public Use
  Company Number: US-AMGEN-US274849

PATIENT
  Age: 46 Year
  Sex: Male

DRUGS (15)
  1. EPOGEN [Suspect]
     Indication: DIALYSIS
     Dates: end: 20080301
  2. SENSIPAR [Concomitant]
  3. LITHIUM CARBONATE [Concomitant]
  4. PROCYCLIDINE HYDROCHLORIDE 5MG TAB [Concomitant]
  5. PROLIXIN [Concomitant]
  6. LIPITOR [Concomitant]
  7. PRANDIN [Concomitant]
  8. ACTOS [Concomitant]
  9. DIOVAN [Concomitant]
  10. URECHOLINE [Concomitant]
  11. REGLAN [Concomitant]
  12. PREVACID [Concomitant]
  13. TPN [Concomitant]
  14. VITAMINS [Concomitant]
  15. JANUVIA [Concomitant]

REACTIONS (3)
  - LEUKOPENIA [None]
  - THERAPEUTIC RESPONSE DECREASED [None]
  - THROMBOCYTOPENIA [None]
